FAERS Safety Report 5956483-9 (Version None)
Quarter: 2008Q4

REPORT INFORMATION
  Report Type: 
  Country: None (occurrence: None)
  Receive Date: 20081118
  Receipt Date: 20081110
  Transmission Date: 20090506
  Serious: Yes (Hospitalization)
  Sender: FDA-Public Use
  Company Number: A0684177A

PATIENT
  Age: 45 Year
  Sex: Male
  Weight: 75 kg

DRUGS (5)
  1. AVANDIA [Suspect]
     Indication: DIABETES MELLITUS
     Dosage: 4MG PER DAY
     Route: 048
     Dates: start: 20060425, end: 20070529
  2. AVANDARYL [Suspect]
     Indication: DIABETES MELLITUS
     Route: 048
     Dates: start: 20060331, end: 20060424
  3. FORTAMET [Concomitant]
  4. GLUCOPHAGE [Concomitant]
  5. VYTORIN [Concomitant]

REACTIONS (5)
  - ACUTE CORONARY SYNDROME [None]
  - ANXIETY [None]
  - CARDIAC DISORDER [None]
  - HEART INJURY [None]
  - MYOCARDIAL INFARCTION [None]
